FAERS Safety Report 4515706-3 (Version None)
Quarter: 2004Q4

REPORT INFORMATION
  Report Type: 
  Country: None (occurrence: None)
  Receive Date: 20041130
  Receipt Date: 20041124
  Transmission Date: 20050328
  Serious: Yes (Other)
  Sender: FDA-Public Use
  Company Number: 003622

PATIENT
  Sex: Female

DRUGS (4)
  1. MEDROXYPROGESTERONE ACETATE [Suspect]
     Dosage: ORAL
     Route: 048
     Dates: start: 19921201, end: 19970218
  2. PROVERA [Suspect]
     Dosage: ORAL
     Route: 048
     Dates: start: 19921201, end: 19970218
  3. PREMARIN [Suspect]
     Dosage: ORAL
     Route: 048
     Dates: start: 19921201, end: 19970218
  4. PREMPRO [Suspect]
     Dosage: ORAL
     Route: 048
     Dates: start: 19970218, end: 19990101

REACTIONS (3)
  - BREAST CANCER FEMALE [None]
  - OESTROGEN RECEPTOR ASSAY POSITIVE [None]
  - PROGESTERONE RECEPTOR ASSAY POSITIVE [None]
